FAERS Safety Report 9685431 (Version 1)
Quarter: 2013Q4

REPORT INFORMATION
  Report Type: Spontaneous
  Country: US (occurrence: None)
  Receive Date: 20131112
  Receipt Date: 20131112
  Transmission Date: 20140711
  Serious: No
  Sender: FDA-Public Use
  Company Number: None

PATIENT
  Age: 60 Year
  Sex: Female

DRUGS (1)
  1. ETOPOSIDE 50MG [Suspect]
     Indication: ENDOCRINE NEOPLASM
     Dosage: QD X WK ON 50 MG PO
     Route: 048
     Dates: start: 20130824, end: 201310

REACTIONS (3)
  - Malignant neoplasm progression [None]
  - Metastases to liver [None]
  - Metastases to lung [None]
